FAERS Safety Report 5857257-X (Version None)
Quarter: 2008Q3

REPORT INFORMATION
  Report Type: 
  Country: None (occurrence: None)
  Receive Date: 20080825
  Receipt Date: 20080808
  Transmission Date: 20090109
  Serious: Yes (Death)
  Sender: FDA-Public Use
  Company Number: US-ALLERGAN-0809282US

PATIENT
  Sex: Female

DRUGS (1)
  1. BOTOX [Suspect]
     Indication: CEREBRAL PALSY
     Dosage: UNK, SINGLE
     Route: 030

REACTIONS (1)
  - DEATH [None]
